FAERS Safety Report 20428635 (Version 1)
Quarter: 2022Q1

REPORT INFORMATION
  Report Type: Spontaneous
  Country: EG (occurrence: None)
  Receive Date: 20220204
  Receipt Date: 20220204
  Transmission Date: 20220423
  Serious: Yes (Other)
  Sender: FDA-Public Use
  Company Number: 2022A056043

PATIENT
  Sex: Female

DRUGS (1)
  1. LYNPARZA [Suspect]
     Active Substance: OLAPARIB
     Indication: Triple negative breast cancer
     Route: 048
     Dates: start: 2017

REACTIONS (4)
  - Secondary immunodeficiency [Not Recovered/Not Resolved]
  - Radiotherapy to breast [Unknown]
  - Product use in unapproved indication [Unknown]
  - Breast operation [Unknown]

NARRATIVE: CASE EVENT DATE: 20170101
